FAERS Safety Report 8623263 (Version 9)
Quarter: 2012Q4

REPORT INFORMATION
  Report Type: 
  Country: CA (occurrence: CA)
  Receive Date: 20120620
  Receipt Date: 20121025
  Transmission Date: 20130627
  Serious: Yes (Death, Hospitalization, Other)
  Sender: FDA-Public Use
  Company Number: PHHY2012CA012410

PATIENT
  Age: 52 None
  Sex: Female

DRUGS (2)
  1. SANDOSTATIN LAR [Suspect]
     Indication: CARCINOID TUMOUR
     Dosage: 30 mg, every 4 weeks
     Route: 030
     Dates: start: 20120131
  2. SANDOSTATIN LAR [Suspect]
     Dosage: 30 mg, every 2 weeks
     Route: 030
     Dates: end: 20121003

REACTIONS (12)
  - Death [Fatal]
  - Pneumonia [Unknown]
  - Hip fracture [Unknown]
  - Malignant neoplasm progression [Unknown]
  - Neuroendocrine carcinoma metastatic [Unknown]
  - Duodenal stenosis [Unknown]
  - Malaise [Unknown]
  - 5-hydroxyindolacetic acid in urine increased [Unknown]
  - Vomiting [Not Recovered/Not Resolved]
  - Decreased appetite [Unknown]
  - Blood glucose increased [Unknown]
  - Injection site pain [Unknown]
